FAERS Safety Report 7472866-2 (Version None)
Quarter: 2011Q2

REPORT INFORMATION
  Report Type: 
  Country: None (occurrence: None)
  Receive Date: 20110511
  Receipt Date: 20110506
  Transmission Date: 20111010
  Serious: No
  Sender: FDA-Public Use
  Company Number: US-PFIZER INC-2011089824

PATIENT
  Sex: Female
  Weight: 63.5 kg

DRUGS (6)
  1. PREMARIN [Concomitant]
     Dosage: UNK
  2. VITAMIN D [Concomitant]
     Dosage: UNK
  3. MULTI-VITAMINS [Concomitant]
     Dosage: UNK
  4. PENICILLIN G PROCAINE [Suspect]
     Dosage: UNK
  5. NEXIUM [Concomitant]
     Dosage: UNK
  6. LIPITOR [Concomitant]
     Dosage: UNK

REACTIONS (1)
  - NO ADVERSE EVENT [None]
